FAERS Safety Report 19749830 (Version 2)
Quarter: 2021Q3

REPORT INFORMATION
  Report Type: Spontaneous
  Country: GB (occurrence: GB)
  Receive Date: 20210826
  Receipt Date: 20210915
  Transmission Date: 20211014
  Serious: Yes (Other)
  Sender: FDA-Public Use
  Company Number: GB-ACCORD-233020

PATIENT
  Age: 55 Year
  Sex: Female

DRUGS (25)
  1. TRASTUZUMAB. [Suspect]
     Active Substance: TRASTUZUMAB
     Indication: PRODUCT USED FOR UNKNOWN INDICATION
     Dosage: 400 MG, CYCLIC (EVERY 3 WEEKS)
     Route: 042
     Dates: start: 20170614, end: 20180425
  2. CHLORPHENAMINE/CHLORPHENAMINE MALEATE/CHLORPHENAMINE RESINATE/CHLORPHENAMINE TANNATE [Concomitant]
     Active Substance: CHLORPHENIRAMINE
     Dosage: 4 MG, 4X/DAY
     Route: 048
     Dates: start: 20170526
  3. CLOBETASOL [Concomitant]
     Active Substance: CLOBETASOL
     Dosage: 0.05 %, CYCLIC
     Route: 061
     Dates: start: 20170210
  4. PERTUZUMAB. [Suspect]
     Active Substance: PERTUZUMAB
     Indication: BREAST CANCER
     Dosage: 840 MG, CYCLIC (EVERY 3 WEEKS (LOADING DOSE))
     Route: 042
     Dates: start: 20170524, end: 20170524
  5. SANDO K [Concomitant]
     Dosage: 1 DF, 2X/DAY
     Route: 048
     Dates: start: 20170525
  6. ZOLEDRONIC ACID [Concomitant]
     Active Substance: ZOLEDRONIC ACID
     Dosage: 4 MG
     Route: 042
     Dates: start: 20170525
  7. DOMPERIDONE [Concomitant]
     Active Substance: DOMPERIDONE
     Dosage: 10 MG, CYCLIC
     Route: 048
     Dates: start: 20170523
  8. FLUCLOXACILLIN [Concomitant]
     Active Substance: FLUCLOXACILLIN
     Dosage: UNK
     Route: 048
     Dates: start: 20190122
  9. TRASTUZUMAB/EMTANSINE [Suspect]
     Active Substance: ADO-TRASTUZUMAB EMTANSINE
     Indication: PRODUCT USED FOR UNKNOWN INDICATION
     Dosage: 160 MG, CYCLIC (EVERY 3 WEEKS)
     Route: 042
     Dates: start: 20190829
  10. TINZAPARIN/TINZAPARIN SODIUM [Concomitant]
     Active Substance: TINZAPARIN SODIUM
     Dosage: UNK
     Route: 058
     Dates: start: 20170713, end: 20190723
  11. APIXABAN [Concomitant]
     Active Substance: APIXABAN
     Indication: DEPRESSED MOOD
     Dosage: 2.5 MG, 2X/DAY
     Route: 048
     Dates: start: 20190819, end: 20190917
  12. CHLORHEXIDINE [Concomitant]
     Active Substance: CHLORHEXIDINE
     Dosage: 10 ML, 4X/DAY
     Route: 061
     Dates: start: 20170525
  13. IKERVIS [Concomitant]
     Active Substance: CYCLOSPORINE
     Dosage: UNK
     Route: 047
     Dates: start: 201708
  14. DOCETAXEL. [Suspect]
     Active Substance: DOCETAXEL
     Indication: BREAST CANCER
     Dosage: 130 MG, CYCLIC (EVERY 3 WEEKS)
     Route: 042
     Dates: start: 20170525, end: 20170525
  15. PACLITAXEL/PACLITAXEL LIPOSOME [Suspect]
     Active Substance: PACLITAXEL
     Indication: BREAST CANCER
     Dosage: 450 MG, CYCLIC (EVERY 3 WEEKS)
     Route: 042
     Dates: start: 20170614, end: 20170614
  16. RANITIDINE. [Concomitant]
     Active Substance: RANITIDINE
     Dosage: 150 MG, 2X/DAY
     Route: 048
     Dates: start: 20170525
  17. CETIRIZINE [Concomitant]
     Active Substance: CETIRIZINE HYDROCHLORIDE
     Dosage: 10 MG, 1X/DAY
     Route: 048
     Dates: start: 20190313
  18. ERYTHROMYCIN. [Concomitant]
     Active Substance: ERYTHROMYCIN
     Dosage: UNK
     Route: 048
     Dates: start: 20190123, end: 20190202
  19. LOPERAMIDE [Concomitant]
     Active Substance: LOPERAMIDE
     Dosage: 2 MG
     Route: 048
     Dates: start: 20170613
  20. PARACETAMOL [Concomitant]
     Active Substance: ACETAMINOPHEN
     Dosage: UNK
     Route: 048
     Dates: start: 20170525
  21. AMITRIPTYLINE [Concomitant]
     Active Substance: AMITRIPTYLINE
     Indication: DEPRESSED MOOD
     Dosage: 5 MG, 1X/DAY
     Route: 048
     Dates: start: 20190827
  22. CARMELLOSE [Concomitant]
     Active Substance: CARBOXYMETHYLCELLULOSE
     Dosage: 1 DF, 4X/DAY
     Route: 060
     Dates: start: 20170526
  23. TRANEXAMIC ACID. [Concomitant]
     Active Substance: TRANEXAMIC ACID
     Dosage: UNK
     Dates: start: 20190722
  24. CALCICHEW D3 FORTE [Concomitant]
     Active Substance: CALCIUM\CHOLECALCIFEROL
     Dosage: UNK, 3X/DAY
     Route: 048
     Dates: start: 20170525
  25. DIETHANOLAMINE FUSIDATE/FUSIDATE SODIUM/FUSIDIC ACID [Concomitant]
     Active Substance: DIETHANOLAMINE FUSIDATE\FUSIDATE SODIUM\FUSIDIC ACID
     Dosage: UNK
     Dates: start: 201905

REACTIONS (1)
  - Gastritis [Not Recovered/Not Resolved]

NARRATIVE: CASE EVENT DATE: 20190727
